FAERS Safety Report 6359665-X (Version None)
Quarter: 2009Q3

REPORT INFORMATION
  Report Type: 
  Country: None (occurrence: None)
  Receive Date: 20090917
  Receipt Date: 20090908
  Transmission Date: 20100115
  Serious: Yes (Other)
  Sender: FDA-Public Use
  Company Number: JP-ASTRAZENECA-2009SE11023

PATIENT
  Age: 953 Month
  Sex: Female

DRUGS (4)
  1. CRESTOR [Suspect]
     Indication: HYPERCHOLESTEROLAEMIA
     Route: 048
     Dates: start: 20090314, end: 20090701
  2. CRESTOR [Suspect]
     Dosage: ONE TABLET WAS DIVIDED IN HALF ADMINISTERED
     Route: 048
     Dates: start: 20090701
  3. AMLODIPINE [Concomitant]
     Indication: HYPERTENSION
     Route: 048
  4. KENTON [Concomitant]
     Indication: HYPERLIPIDAEMIA
     Route: 048

REACTIONS (1)
  - PULMONARY HAEMORRHAGE [None]
